FAERS Safety Report 25736952 (Version 1)
Quarter: 2025Q3

REPORT INFORMATION
  Report Type: Report from Study
  Country: CA (occurrence: CA)
  Receive Date: 20250828
  Receipt Date: 20250828
  Transmission Date: 20251021
  Serious: Yes (Other)
  Sender: PFIZER
  Company Number: CA-PFIZER INC-202500171286

PATIENT
  Age: 57 Year
  Sex: Male

DRUGS (2)
  1. RITUXIMAB [Suspect]
     Active Substance: RITUXIMAB
  2. AVACOPAN [Suspect]
     Active Substance: AVACOPAN
     Indication: Anti-neutrophil cytoplasmic antibody positive vasculitis
     Dosage: 60 MG, 1X/DAY
     Route: 048

REACTIONS (1)
  - Atrial fibrillation [Unknown]
